FAERS Safety Report 14266785 (Version 4)
Quarter: 2018Q1

REPORT INFORMATION
  Report Type: Spontaneous
  Country: US (occurrence: US)
  Receive Date: 20171211
  Receipt Date: 20180327
  Transmission Date: 20180508
  Serious: No
  Sender: FDA-Public Use
  Company Number: US-ELI_LILLY_AND_COMPANY-US201712003778

PATIENT
  Age: 80 Year
  Sex: Female

DRUGS (7)
  1. ROSUVASTATIN. [Concomitant]
     Active Substance: ROSUVASTATIN
     Indication: CEREBROVASCULAR ACCIDENT
  2. ZETIA [Concomitant]
     Active Substance: EZETIMIBE
     Indication: BLOOD CHOLESTEROL INCREASED
     Dosage: 10 MG, TID
     Route: 065
  3. FORTEO [Suspect]
     Active Substance: TERIPARATIDE
     Dosage: UNK
     Route: 065
     Dates: start: 20171204
  4. FORTEO [Suspect]
     Active Substance: TERIPARATIDE
     Indication: OSTEOPOROSIS
     Dosage: 20 UG, UNKNOWN
     Route: 058
     Dates: start: 20171204
  5. ZETIA [Concomitant]
     Active Substance: EZETIMIBE
     Indication: CEREBROVASCULAR ACCIDENT
  6. FORTEO [Suspect]
     Active Substance: TERIPARATIDE
     Dosage: 20 UG, UNKNOWN
     Route: 058
     Dates: start: 20171216
  7. ROSUVASTATIN. [Concomitant]
     Active Substance: ROSUVASTATIN
     Indication: BLOOD CHOLESTEROL INCREASED
     Dosage: 5 MG, TID
     Route: 065

REACTIONS (9)
  - Nausea [Recovered/Resolved]
  - Muscle spasms [Recovered/Resolved]
  - Nausea [Unknown]
  - Dizziness [Unknown]
  - Procedural pain [Unknown]
  - Dizziness [Recovered/Resolved]
  - Injection site bruising [Recovered/Resolved]
  - Injection site inflammation [Recovered/Resolved]
  - Tongue discomfort [Unknown]

NARRATIVE: CASE EVENT DATE: 20171204
